FAERS Safety Report 19626346 (Version 1)
Quarter: 2021Q3

REPORT INFORMATION
  Report Type: Spontaneous
  Country: US (occurrence: US)
  Receive Date: 20210728
  Receipt Date: 20210728
  Transmission Date: 20211014
  Serious: Yes (Hospitalization)
  Sender: FDA-Public Use
  Company Number: None

PATIENT
  Age: 56 Year
  Sex: Female

DRUGS (1)
  1. CAPECITABINE TAB 500MG [Suspect]
     Active Substance: CAPECITABINE
     Route: 048
     Dates: start: 202107

REACTIONS (5)
  - Pulmonary thrombosis [None]
  - Venous thrombosis limb [None]
  - Fatigue [None]
  - Off label use [None]
  - Thrombosis [None]

NARRATIVE: CASE EVENT DATE: 20210704
